FAERS Safety Report 5118983-3 (Version None)
Quarter: 2006Q3

REPORT INFORMATION
  Report Type: 
  Country: None (occurrence: None)
  Receive Date: 20060927
  Receipt Date: 20060915
  Transmission Date: 20061208
  Serious: Yes (Other)
  Sender: FDA-Public Use
  Company Number: 2006107893

PATIENT
  Age: 61 Year
  Sex: Male

DRUGS (1)
  1. VIAGRA [Suspect]
     Indication: DRUG USE FOR UNKNOWN INDICATION
     Dosage: 100 MG, ORAL
     Route: 048

REACTIONS (6)
  - ANAEMIA [None]
  - DYSPEPSIA [None]
  - GASTRIC CANCER [None]
  - GASTRIC DISORDER [None]
  - GASTRITIS [None]
  - HELICOBACTER INFECTION [None]
